FAERS Safety Report 17224832 (Version 2)
Quarter: 2020Q1

REPORT INFORMATION
  Report Type: Spontaneous
  Country: US (occurrence: US)
  Receive Date: 20200102
  Receipt Date: 20200320
  Transmission Date: 20200409
  Serious: No
  Sender: FDA-Public Use
  Company Number: US-AMAG PHARMACEUTICALS, INC.-AMAG201906291

PATIENT
  Age: 31 Year
  Sex: Female
  Weight: 61.29 kg

DRUGS (1)
  1. MAKENA [Suspect]
     Active Substance: HYDROXYPROGESTERONE CAPROATE
     Indication: PREMATURE DELIVERY
     Dosage: 250MG/ML, WEEKLY
     Route: 058
     Dates: start: 20191119, end: 20191203

REACTIONS (9)
  - Injection site pain [Unknown]
  - Nightmare [Unknown]
  - Moaning [Unknown]
  - Insomnia [Unknown]
  - Erythema [Unknown]
  - Hypoaesthesia [Unknown]
  - Nausea [Unknown]
  - Dizziness [Unknown]
  - Malaise [Unknown]

NARRATIVE: CASE EVENT DATE: 20191203
